FAERS Safety Report 15057561 (Version 6)
Quarter: 2018Q3

REPORT INFORMATION
  Report Type: Spontaneous
  Country: ES (occurrence: ES)
  Receive Date: 20180625
  Receipt Date: 20180822
  Transmission Date: 20181010
  Serious: Yes (Other)
  Sender: FDA-Public Use
  Company Number: ES-ROCHE-2097213

PATIENT
  Age: 14 Year
  Sex: Female

DRUGS (10)
  1. VINCRISTINE [Suspect]
     Active Substance: VINCRISTINE
     Indication: EWING^S SARCOMA
     Dosage: ON DAY 1, COMPLETED SIX CYCLES PRIOR TO SURGICAL RESECTION
     Route: 042
     Dates: start: 200904
  2. ACTINOMYCIN D [Suspect]
     Active Substance: DACTINOMYCIN
     Indication: EWING^S SARCOMA
     Dosage: DAYS 1?2 EVERY 3 WEEKS
     Route: 042
     Dates: start: 200910
  3. IFOSFAMIDE. [Suspect]
     Active Substance: IFOSFAMIDE
     Indication: EWING^S SARCOMA
     Dosage: DAYS 1?3 EVERY 3 WEEKS
     Route: 042
     Dates: start: 200904
  4. TEMOZOLOMIDE. [Suspect]
     Active Substance: TEMOZOLOMIDE
     Indication: EWING^S SARCOMA
     Dosage: DAYS 1?21 EVERY 21 DAYS
     Route: 048
     Dates: start: 201004
  5. VINCRISTINE [Suspect]
     Active Substance: VINCRISTINE
     Indication: EWING^S SARCOMA
     Dosage: ON DAY 1
     Route: 042
     Dates: start: 200910
  6. CYCLOPHOSPHAMIDE. [Suspect]
     Active Substance: CYCLOPHOSPHAMIDE
     Indication: EWING^S SARCOMA
     Route: 042
     Dates: start: 200910
  7. BEVACIZUMAB. [Suspect]
     Active Substance: BEVACIZUMAB
     Indication: EWING^S SARCOMA
     Dosage: EVERY 21 DAYS X 5 CYCLES
     Route: 042
     Dates: start: 201004
  8. ETOPOSIDE. [Suspect]
     Active Substance: ETOPOSIDE
     Indication: EWING^S SARCOMA
     Dosage: DAYS 1?3 EVERY 3 WEEKS
     Route: 042
     Dates: start: 200904
  9. DOXORUBICIN [Suspect]
     Active Substance: DOXORUBICIN
     Indication: EWING^S SARCOMA
     Dosage: DAYS 1?3?EVERY THREE WEEKS X 6 CYCLES
     Route: 042
     Dates: start: 200904
  10. IRINOTECAN [Suspect]
     Active Substance: IRINOTECAN
     Indication: EWING^S SARCOMA
     Dosage: DAYS 1?5 AND 8?13
     Route: 042
     Dates: start: 201004

REACTIONS (6)
  - Intentional product use issue [Unknown]
  - Drug ineffective [Unknown]
  - Drug effect incomplete [Unknown]
  - Off label use [Unknown]
  - Blood stem cell harvest failure [Recovered/Resolved]
  - Treatment failure [Recovered/Resolved]

NARRATIVE: CASE EVENT DATE: 201007
